FAERS Safety Report 9475021 (Version 1)
Quarter: 2013Q3

REPORT INFORMATION
  Report Type: Spontaneous
  Country: FR (occurrence: None)
  Receive Date: 20130820
  Receipt Date: 20130820
  Transmission Date: 20140515
  Serious: Yes (Other)
  Sender: FDA-Public Use
  Company Number: ACO_36553_2013

PATIENT
  Age: 65 Year
  Sex: Female
  Weight: 71 kg

DRUGS (13)
  1. FAMPYRA (DALFAMPRIDINE) TABLET, 10 MG [Suspect]
     Indication: GAIT DISTURBANCE
     Route: 048
     Dates: start: 20040429, end: 20130516
  2. LYRICA [Concomitant]
  3. LXPRIM [Concomitant]
  4. IMOVANE [Concomitant]
  5. SEROPLEX [Concomitant]
  6. ATHYMIL [Concomitant]
  7. ATARAX [Concomitant]
  8. FORLAX [Concomitant]
  9. AVLOCARDYL [Concomitant]
  10. RENITEC [Concomitant]
  11. VESICARE [Concomitant]
  12. INEXIUM [Concomitant]
  13. ALL OTHER THERAPEUTIC PRODUCTS [Concomitant]

REACTIONS (2)
  - Hypertension [None]
  - Asthenia [None]
